FAERS Safety Report 13687137 (Version 8)
Quarter: 2018Q3

REPORT INFORMATION
  Report Type: Spontaneous
  Country: PT (occurrence: PT)
  Receive Date: 20170623
  Receipt Date: 20180720
  Transmission Date: 20181010
  Serious: Yes (Other)
  Sender: FDA-Public Use
  Company Number: PT-JNJFOC-20170600454

PATIENT
  Age: 43 Year
  Sex: Female

DRUGS (15)
  1. NORVIR [Suspect]
     Active Substance: RITONAVIR
     Indication: HIV INFECTION
     Route: 065
     Dates: start: 2009, end: 2013
  2. TIVICAY [Suspect]
     Active Substance: DOLUTEGRAVIR SODIUM
     Indication: HIV INFECTION
     Route: 065
     Dates: start: 2015, end: 2015
  3. EMTRICITABINE W/TENOFOVIR DISOPROXIL FUMARATE [Suspect]
     Active Substance: EMTRICITABINE\TENOFOVIR DISOPROXIL
     Indication: HIV INFECTION
     Route: 065
     Dates: start: 201407, end: 20151204
  4. EMTRICITABINE W/TENOFOVIR DISOPROXIL FUMARATE [Suspect]
     Active Substance: EMTRICITABINE\TENOFOVIR DISOPROXIL
     Indication: HIV INFECTION
     Route: 065
     Dates: start: 20151204, end: 20151226
  5. PREZISTA [Suspect]
     Active Substance: DARUNAVIR ETHANOLATE
     Indication: HIV INFECTION
     Route: 048
     Dates: start: 20151227, end: 201702
  6. TIVICAY [Suspect]
     Active Substance: DOLUTEGRAVIR SODIUM
     Indication: HIV INFECTION
     Route: 065
     Dates: start: 20151227, end: 201702
  7. NORVIR [Suspect]
     Active Substance: RITONAVIR
     Indication: HIV INFECTION
     Route: 065
     Dates: start: 2015, end: 20151204
  8. PREZISTA [Suspect]
     Active Substance: DARUNAVIR ETHANOLATE
     Indication: HIV INFECTION
     Route: 048
     Dates: start: 2009, end: 2013
  9. PREZISTA [Suspect]
     Active Substance: DARUNAVIR ETHANOLATE
     Indication: HIV INFECTION
     Route: 048
     Dates: start: 201706
  10. NORVIR [Suspect]
     Active Substance: RITONAVIR
     Indication: HIV INFECTION
     Route: 065
     Dates: start: 20151227, end: 201702
  11. TIVICAY [Suspect]
     Active Substance: DOLUTEGRAVIR SODIUM
     Indication: HIV INFECTION
     Route: 065
     Dates: start: 201706
  12. NORVIR [Suspect]
     Active Substance: RITONAVIR
     Indication: HIV INFECTION
     Route: 065
     Dates: start: 201706
  13. TIVICAY [Suspect]
     Active Substance: DOLUTEGRAVIR SODIUM
     Indication: HIV INFECTION
     Route: 065
     Dates: start: 20151204, end: 20151226
  14. NORVIR [Suspect]
     Active Substance: RITONAVIR
     Indication: HIV INFECTION
     Route: 065
     Dates: start: 201407
  15. EMTRICITABINE W/TENOFOVIR DISOPROXIL FUMARATE [Suspect]
     Active Substance: EMTRICITABINE\TENOFOVIR DISOPROXIL
     Indication: HIV INFECTION
     Route: 065
     Dates: start: 2009, end: 2013

REACTIONS (33)
  - Thyroid mass [Recovering/Resolving]
  - Vaginal lesion [Unknown]
  - Weight decreased [Recovering/Resolving]
  - Thrombocytopenia [Recovering/Resolving]
  - Respiratory tract infection [Recovering/Resolving]
  - Depression [Unknown]
  - Fibrocystic breast disease [Unknown]
  - Bronchitis chronic [Unknown]
  - Dyspnoea [Recovering/Resolving]
  - Urinary tract infection [Unknown]
  - Haemorrhage [Not Recovered/Not Resolved]
  - Hepatitis C [Recovering/Resolving]
  - Lipoma [Recovering/Resolving]
  - Leiomyoma [Recovering/Resolving]
  - Visual impairment [Recovered/Resolved]
  - Pulmonary tuberculosis [Unknown]
  - Uterine leiomyoma [Unknown]
  - Abdominal distension [Recovered/Resolved]
  - Menorrhagia [Not Recovered/Not Resolved]
  - Pain [Recovering/Resolving]
  - Throat irritation [Recovering/Resolving]
  - Constipation [Recovering/Resolving]
  - Tooth disorder [Recovering/Resolving]
  - Arthralgia [Unknown]
  - Hypokinesia [Not Recovered/Not Resolved]
  - Spleen disorder [Recovered/Resolved]
  - Hyperthyroidism [Unknown]
  - Alopecia [Recovering/Resolving]
  - Hypoaesthesia oral [Recovering/Resolving]
  - Cyst [Recovering/Resolving]
  - Rheumatoid factor increased [Not Recovered/Not Resolved]
  - Joint swelling [Recovering/Resolving]
  - Hypothyroidism [Unknown]

NARRATIVE: CASE EVENT DATE: 2013
